FAERS Safety Report 9247361 (Version 2)
Quarter: 2013Q2

REPORT INFORMATION
  Report Type: Spontaneous
  Country: US (occurrence: US)
  Receive Date: 20130423
  Receipt Date: 20130516
  Transmission Date: 20140414
  Serious: Yes (Hospitalization)
  Sender: FDA-Public Use
  Company Number: US-JNJFOC-20130407533

PATIENT
  Age: 85 Year
  Sex: Female
  Weight: 51.26 kg

DRUGS (10)
  1. EXTRA STRENGTH TYLENOL [Suspect]
     Indication: PAIN
     Route: 048
     Dates: end: 20130423
  2. PRADAXA [Concomitant]
     Indication: CARDIAC DISORDER
     Route: 065
     Dates: start: 201204
  3. PRADAXA [Concomitant]
     Indication: COAGULOPATHY
     Route: 065
     Dates: start: 201204
  4. DIGOXIN [Concomitant]
     Indication: CARDIAC FAILURE CONGESTIVE
     Route: 065
     Dates: start: 201202
  5. DIOVAN [Concomitant]
     Indication: BLOOD PRESSURE
     Route: 065
     Dates: start: 201202
  6. LEVOTHYROXINE [Concomitant]
     Indication: HYPOTHYROIDISM
     Route: 065
     Dates: start: 1999
  7. GLIPIZIDE [Concomitant]
     Indication: DIABETES MELLITUS
     Route: 065
     Dates: start: 1985
  8. CENTRUM SILVER [Concomitant]
     Indication: BONE DENSITY ABNORMAL
     Dosage: MID 1990^S
     Route: 065
  9. CITRACAL PLUS D [Concomitant]
     Route: 065
  10. LATANOPROST [Concomitant]
     Route: 065
     Dates: start: 2011

REACTIONS (5)
  - Asthenia [Recovered/Resolved]
  - Diarrhoea [Unknown]
  - Heart rate increased [Recovering/Resolving]
  - Product quality issue [None]
  - Heart rate irregular [None]
